FAERS Safety Report 5070389-1 (Version None)
Quarter: 2006Q3

REPORT INFORMATION
  Report Type: 
  Country: None (occurrence: None)
  Receive Date: 20060802
  Receipt Date: 20060712
  Transmission Date: 20061208
  Serious: Yes (Death)
  Sender: FDA-Public Use
  Company Number: S06-ISR-02567-01

PATIENT
  Age: 81 Year
  Sex: Male
  Weight: 58 kg

DRUGS (7)
  1. ESCITALOPRAM OXALATE [Suspect]
     Indication: DEPRESSION
     Dosage: 5 MG QD PO
     Route: 048
     Dates: start: 20060521, end: 20060528
  2. ESCITALOPRAM OXALATE [Suspect]
     Indication: DEPRESSION
     Dosage: 10 MG QD PO
     Route: 048
     Dates: start: 20060529, end: 20060612
  3. VERAPAMIL [Concomitant]
  4. VITAMIN D [Concomitant]
  5. CALCIMORE (CALCIUM CARBONATE) [Concomitant]
  6. IPRATROPIUM BROMIDE [Concomitant]
  7. TAMSULOSIN HYDROCHLORIDE [Concomitant]

REACTIONS (3)
  - COMPLETED SUICIDE [None]
  - DEPRESSION [None]
  - SUICIDAL IDEATION [None]
